FAERS Safety Report 7778528-6 (Version None)
Quarter: 2011Q3

REPORT INFORMATION
  Report Type: 
  Country: None (occurrence: None)
  Receive Date: 20110926
  Receipt Date: 20110913
  Transmission Date: 20111222
  Serious: Yes (Other)
  Sender: FDA-Public Use
  Company Number: US-BAYER-201030173NA

PATIENT
  Age: 20 Year
  Sex: Female
  Weight: 58.957 kg

DRUGS (9)
  1. CYMBALTA [Concomitant]
     Dosage: UNK
     Dates: start: 20061013, end: 20080601
  2. YAZ [Suspect]
     Dosage: UNK
     Dates: start: 20090724, end: 20091001
  3. AMBIEN [Concomitant]
     Dosage: UNK
     Dates: start: 20050127, end: 20070501
  4. HYDROCODONE [Concomitant]
     Dosage: UNK
     Dates: start: 20051216, end: 20090701
  5. YAZ [Suspect]
     Indication: PRODUCT USED FOR UNKNOWN INDICATION
     Dosage: UNK UNK, UNK
     Route: 048
     Dates: start: 20060712, end: 20070901
  6. OXYCODONE HYDROCHLORIDE EXTENDED RELEASE [Concomitant]
     Dosage: UNK
     Dates: start: 20070130, end: 20080801
  7. LEXAPRO [Concomitant]
     Dosage: UNK
     Dates: start: 20060904, end: 20070801
  8. METHYLPREDNISONE PSPK [Concomitant]
     Dosage: UNK
     Dates: start: 20070601, end: 20070605
  9. TIZANIDINE HCL [Concomitant]
     Dosage: UNK
     Dates: start: 20050216, end: 20091001

REACTIONS (8)
  - PHANTOM PAIN [None]
  - GALLBLADDER DISORDER [None]
  - HEADACHE [None]
  - NECK PAIN [None]
  - CHOLELITHIASIS [None]
  - CHOLECYSTITIS CHRONIC [None]
  - ABDOMINAL PAIN [None]
  - SCAR [None]
